FAERS Safety Report 14073855 (Version 1)
Quarter: 2017Q4

REPORT INFORMATION
  Report Type: Spontaneous
  Country: US (occurrence: US)
  Receive Date: 20171011
  Receipt Date: 20171011
  Transmission Date: 20180321
  Serious: Yes (Hospitalization)
  Sender: FDA-Public Use
  Company Number: US-PFIZER INC-2017436791

PATIENT
  Age: 46 Year
  Sex: Female
  Weight: 131.54 kg

DRUGS (3)
  1. LYRICA [Suspect]
     Active Substance: PREGABALIN
     Indication: FIBROMYALGIA
     Dosage: UNK
     Dates: start: 2016, end: 2016
  2. LYRICA [Suspect]
     Active Substance: PREGABALIN
     Indication: SWELLING
  3. LYRICA [Suspect]
     Active Substance: PREGABALIN
     Indication: INFLAMMATION

REACTIONS (3)
  - Dehydration [Recovered/Resolved]
  - Malaise [Recovered/Resolved]
  - Vomiting [Recovered/Resolved]

NARRATIVE: CASE EVENT DATE: 2016
